FAERS Safety Report 13073638 (Version 1)
Quarter: 2016Q4

REPORT INFORMATION
  Report Type: Spontaneous
  Country: DK (occurrence: DK)
  Receive Date: 20161229
  Receipt Date: 20161229
  Transmission Date: 20170207
  Serious: Yes (Disabling)
  Sender: FDA-Public Use
  Company Number: DK-TEVA-722790ACC

PATIENT
  Sex: Female

DRUGS (4)
  1. TAMOXIFEN [Concomitant]
     Active Substance: TAMOXIFEN
     Indication: BREAST CANCER
     Dates: start: 2014, end: 201412
  2. SENDOXAN [Suspect]
     Active Substance: CYCLOPHOSPHAMIDE
     Indication: BREAST CANCER
     Dates: start: 20130830, end: 20131014
  3. DOCETAXEL ^ACTAVIS^ [Suspect]
     Active Substance: DOCETAXEL
     Indication: BREAST CANCER
     Dates: start: 20131104, end: 20131216
  4. EPIRUBICIN ^ACTAVIS^ [Suspect]
     Active Substance: EPIRUBICIN
     Indication: BREAST CANCER
     Dates: start: 20130830, end: 20131014

REACTIONS (10)
  - Oral pain [Unknown]
  - Dizziness [None]
  - Drug withdrawal headache [Unknown]
  - Impaired work ability [None]
  - Oral candidiasis [None]
  - Oral fungal infection [Unknown]
  - Tooth extraction [Recovered/Resolved]
  - Balance disorder [Unknown]
  - Fall [Unknown]
  - Stomatitis [None]

NARRATIVE: CASE EVENT DATE: 2013
